FAERS Safety Report 18913369 (Version 1)
Quarter: 2021Q1

REPORT INFORMATION
  Report Type: Report from Study
  Country: US (occurrence: US)
  Receive Date: 20210219
  Receipt Date: 20210219
  Transmission Date: 20210420
  Serious: Yes (Death, Other)
  Sender: FDA-Public Use
  Company Number: US-ACADIA PHARMACEUTICALS INC.-ACA-2021-PIM-000403

PATIENT
  Sex: Female

DRUGS (9)
  1. TRINTELLIX [Concomitant]
     Active Substance: VORTIOXETINE HYDROBROMIDE
  2. OLANZAPINE. [Concomitant]
     Active Substance: OLANZAPINE
  3. PREGABALIN. [Concomitant]
     Active Substance: PREGABALIN
  4. RIVASTIGMINE. [Concomitant]
     Active Substance: RIVASTIGMINE
  5. MEGACE [Concomitant]
     Active Substance: MEGESTROL ACETATE
  6. NUPLAZID [Suspect]
     Active Substance: PIMAVANSERIN TARTRATE
     Indication: PARKINSON^S DISEASE
     Dosage: 34 MILLIGRAM, QD
     Route: 048
     Dates: start: 20180919, end: 20210122
  7. SINEMET [Concomitant]
     Active Substance: CARBIDOPA\LEVODOPA
  8. RYTARY [Concomitant]
     Active Substance: CARBIDOPA\LEVODOPA
  9. VORTIOXETINE. [Concomitant]
     Active Substance: VORTIOXETINE

REACTIONS (1)
  - Parkinson^s disease [Recovered/Resolved]
